FAERS Safety Report 6978730-7 (Version None)
Quarter: 2010Q3

REPORT INFORMATION
  Report Type: 
  Country: None (occurrence: None)
  Receive Date: 20100913
  Receipt Date: 20100910
  Transmission Date: 20110219
  Serious: Yes (Other)
  Sender: FDA-Public Use
  Company Number: B0674034A

PATIENT
  Age: 49 Year
  Sex: Female

DRUGS (5)
  1. LAMOTRIGINE [Suspect]
     Indication: SCHIZOPHRENIA
  2. PAROXETINE HCL [Suspect]
     Indication: DEPRESSION
  3. AMISULPRIDE [Suspect]
     Indication: SCHIZOPHRENIA
  4. RAMIPRIL [Suspect]
     Indication: BLOOD PRESSURE
  5. CLOZARIL [Suspect]
     Route: 048
     Dates: start: 20050207

REACTIONS (2)
  - BREAST ABSCESS [None]
  - BREAST CANCER [None]
